FAERS Safety Report 15424983 (Version 4)
Quarter: 2020Q1

REPORT INFORMATION
  Report Type: Spontaneous
  Country: US (occurrence: US)
  Receive Date: 20180925
  Receipt Date: 20200325
  Transmission Date: 20200409
  Serious: Yes (Other)
  Sender: FDA-Public Use
  Company Number: US-PFIZER INC-2018381606

PATIENT
  Age: 17 Year
  Sex: Male

DRUGS (9)
  1. DILANTIN [Suspect]
     Active Substance: PHENYTOIN
     Dosage: 60 MG, DAILY (INCREASED TO 60 MG DAILY ON THE 110TH HOSPITAL DAY)
  2. MELLARIL [Concomitant]
     Active Substance: THIORIDAZINE HYDROCHLORIDE
     Indication: SEIZURE
     Dosage: 75 MG, DAILY
     Dates: start: 19620730
  3. DILANTIN [Suspect]
     Active Substance: PHENYTOIN
     Dosage: 30 MG, DAILY
  4. DILANTIN [Suspect]
     Active Substance: PHENYTOIN
     Indication: SEIZURE
     Dosage: 300 MG, DAILY
     Dates: start: 19600310
  5. DILANTIN [Suspect]
     Active Substance: PHENYTOIN
     Dosage: 334 G, UNK (OVER THE PRECEDING 2 YEARS)
  6. DILANTIN [Suspect]
     Active Substance: PHENYTOIN
     Dosage: 100 MG, 3X/DAY (TOTAL COURSE OF 4.7 GM OVER 17 DAYS)
  7. PHENOBARBITAL. [Concomitant]
     Active Substance: PHENOBARBITAL
     Indication: SEIZURE
     Dosage: 90 MG, DAILY
  8. PHENOBARBITAL. [Concomitant]
     Active Substance: PHENOBARBITAL
     Dosage: 135 MG, DAILY
  9. DILANTIN [Suspect]
     Active Substance: PHENYTOIN
     Dosage: 400 MG, UNK
     Dates: start: 19610130

REACTIONS (1)
  - Aplasia pure red cell [Recovered/Resolved]
